FAERS Safety Report 20070666 (Version 1)
Quarter: 2021Q4

REPORT INFORMATION
  Report Type: Spontaneous
  Country: US (occurrence: US)
  Receive Date: 20211115
  Receipt Date: 20211115
  Transmission Date: 20220303
  Serious: Yes (Other)
  Sender: FDA-Public Use
  Company Number: US-OTSUKA-2018_007787

PATIENT
  Age: 29 Year
  Sex: Female

DRUGS (4)
  1. ABILIFY MAINTENA [Suspect]
     Active Substance: ARIPIPRAZOLE
     Indication: Schizophrenia
     Dosage: 300 MG, QM
     Route: 065
     Dates: start: 20170615
  2. ABILIFY MAINTENA [Suspect]
     Active Substance: ARIPIPRAZOLE
     Dosage: 400 MG, QM (2 MONTHS AGO)
     Route: 065
  3. HALDOL [Concomitant]
     Active Substance: HALOPERIDOL
     Indication: Product used for unknown indication
     Dosage: 1 MG, UNK
     Route: 065
  4. BENZTROPINE [Concomitant]
     Active Substance: BENZTROPINE
     Indication: Product used for unknown indication
     Dosage: 0.5 MG, BID
     Route: 065

REACTIONS (2)
  - Schizophrenia [Unknown]
  - Prescribed underdose [Unknown]
